FAERS Safety Report 5574565-0 (Version None)
Quarter: 2007Q4

REPORT INFORMATION
  Report Type: 
  Country: None (occurrence: None)
  Receive Date: 20071227
  Receipt Date: 20071221
  Transmission Date: 20080405
  Serious: Yes (Other)
  Sender: FDA-Public Use
  Company Number: US-SANOFI-SYNTHELABO-A03200702289

PATIENT
  Sex: Male
  Weight: 79.4 kg

DRUGS (2)
  1. EFFEXOR [Concomitant]
     Dosage: UNK
     Route: 048
  2. AMBIEN [Suspect]
     Indication: INSOMNIA
     Dosage: TAKE HALF TABLET OR ONE TABLET AT BEDTIME AS NEEDED
     Route: 048
     Dates: start: 20060101, end: 20060101

REACTIONS (13)
  - ABNORMAL BEHAVIOUR [None]
  - AMNESIA [None]
  - DISORIENTATION [None]
  - DYSSTASIA [None]
  - FALL [None]
  - GAIT DISTURBANCE [None]
  - HALLUCINATION, VISUAL [None]
  - IMPAIRED DRIVING ABILITY [None]
  - LOSS OF CONSCIOUSNESS [None]
  - ROAD TRAFFIC ACCIDENT [None]
  - SLEEP TALKING [None]
  - SOMNAMBULISM [None]
  - SPEECH DISORDER [None]
